FAERS Safety Report 4872481-0 (Version None)
Quarter: 2006Q1

REPORT INFORMATION
  Report Type: 
  Country: None (occurrence: None)
  Receive Date: 20060104
  Receipt Date: 20051101
  Transmission Date: 20060701
  Serious: Yes (Other)
  Sender: FDA-Public Use
  Company Number: US-AVENTIS-200518864US

PATIENT
  Sex: Female
  Weight: 88.2 kg

DRUGS (16)
  1. LANTUS [Suspect]
     Dosage: DOSE UNIT: UNITS
  2. LANTUS [Suspect]
     Dosage: DOSE: ~36; DOSE UNIT: UNITS
  3. METFORMIN [Concomitant]
     Dosage: DOSE: 500 (2 TABLETS)
     Route: 048
  4. LISINOPRIL [Concomitant]
     Dosage: DOSE: UNK
  5. ISOSORBIDE [Concomitant]
     Dosage: DOSE: UNK
  6. LASIX [Concomitant]
     Route: 048
  7. PREVACID [Concomitant]
     Dosage: DOSE: UNK
  8. LIPITOR [Concomitant]
     Route: 048
  9. NIASPAN [Concomitant]
  10. ASPIRIN [Concomitant]
     Dosage: DOSE: UNK
  11. PLAVIX [Concomitant]
     Route: 048
  12. LEVOXYL [Concomitant]
     Route: 048
  13. COREG [Concomitant]
     Route: 048
  14. AVANDIA [Concomitant]
  15. NITROGLYCERIN [Concomitant]
     Route: 060
  16. VICODIN [Concomitant]

REACTIONS (10)
  - ABDOMINAL PAIN LOWER [None]
  - ABDOMINAL TENDERNESS [None]
  - CHILLS [None]
  - CONVULSION [None]
  - ELECTROCARDIOGRAM T WAVE ABNORMAL [None]
  - HYPERHIDROSIS [None]
  - HYPOGLYCAEMIA [None]
  - LOSS OF CONSCIOUSNESS [None]
  - URINARY TRACT INFECTION [None]
  - URINE ANALYSIS ABNORMAL [None]
